FAERS Safety Report 13355794 (Version 1)
Quarter: 2017Q1

REPORT INFORMATION
  Report Type: Spontaneous
  Country: FR (occurrence: FR)
  Receive Date: 20170321
  Receipt Date: 20170321
  Transmission Date: 20170429
  Serious: Yes (Hospitalization)
  Sender: FDA-Public Use
  Company Number: FR-009507513-1703FRA006418

PATIENT
  Age: 70 Year
  Sex: Female

DRUGS (3)
  1. BRISTOPEN [Suspect]
     Active Substance: OXACILLIN SODIUM
     Indication: INFECTION
     Dosage: 12 G, QD
     Dates: start: 20170222, end: 20170227
  2. CUBICIN [Suspect]
     Active Substance: DAPTOMYCIN
     Indication: INFECTION
     Dosage: 800 MG, QD
     Route: 042
     Dates: start: 20170218
  3. INEXIUM (ESOMEPRAZOLE SODIUM) [Suspect]
     Active Substance: ESOMEPRAZOLE SODIUM
     Indication: PROPHYLAXIS
     Dosage: 40 MG, QD
     Dates: start: 20170218, end: 20170228

REACTIONS (2)
  - Thrombocytopenia [Unknown]
  - Confusional state [Recovered/Resolved]

NARRATIVE: CASE EVENT DATE: 2017
